FAERS Safety Report 5140145-4 (Version None)
Quarter: 2006Q4

REPORT INFORMATION
  Report Type: 
  Country: None (occurrence: None)
  Receive Date: 20061031
  Receipt Date: 20061019
  Transmission Date: 20070319
  Serious: Yes (Hospitalization)
  Sender: FDA-Public Use
  Company Number: FR-ROCHE-468003

PATIENT
  Age: 63 Year
  Sex: Female
  Weight: 40 kg

DRUGS (3)
  1. CAPECITABINE [Suspect]
     Indication: COLORECTAL CANCER
     Dosage: DOSE: 4200MG
     Route: 048
     Dates: start: 20060802
  2. BEVACIZUMAB [Suspect]
     Indication: COLORECTAL CANCER
     Dosage: DOSE: 325MG
     Route: 042
     Dates: start: 20060802
  3. IRINOTECAN HCL [Suspect]
     Indication: COLORECTAL CANCER
     Dosage: DOSE: 290MG
     Route: 042
     Dates: start: 20060802

REACTIONS (4)
  - GENERAL PHYSICAL HEALTH DETERIORATION [None]
  - HEADACHE [None]
  - NAUSEA [None]
  - VOMITING [None]
